FAERS Safety Report 17870982 (Version 2)
Quarter: 2022Q1

REPORT INFORMATION
  Report Type: Spontaneous
  Country: US (occurrence: US)
  Receive Date: 20200608
  Receipt Date: 20220103
  Transmission Date: 20220423
  Serious: Yes (Other)
  Sender: FDA-Public Use
  Company Number: US-AMGEN-USASP2020088234

PATIENT
  Age: 66 Year
  Sex: Female

DRUGS (4)
  1. CARFILZOMIB [Suspect]
     Active Substance: CARFILZOMIB
     Indication: Plasma cell myeloma
     Dosage: 20 MILLIGRAM/SQ. METER, CYCLE DAYS 1/2
     Route: 065
  2. CARFILZOMIB [Suspect]
     Active Substance: CARFILZOMIB
     Dosage: 56 MILLIGRAM/SQ. METER (8, 9, 15 AND 16 OF A 28-DAY CYCLE)
     Route: 065
  3. PELAREOREP [Concomitant]
     Active Substance: PELAREOREP
     Dosage: 4.5 X 1010  TCID50
  4. DEXAMETHASONE [Concomitant]
     Active Substance: DEXAMETHASONE
     Indication: Plasma cell myeloma
     Dosage: 20 MILLIGRAM

REACTIONS (3)
  - Plasma cell myeloma refractory [Unknown]
  - Thrombocytopenia [Unknown]
  - Reoviral infection [Unknown]
